FAERS Safety Report 5471592-9 (Version None)
Quarter: 2007Q3

REPORT INFORMATION
  Report Type: 
  Country: None (occurrence: None)
  Receive Date: 20070928
  Receipt Date: 20070129
  Transmission Date: 20080115
  Serious: No
  Sender: FDA-Public Use
  Company Number: US-BRISTOL-MYERS SQUIBB COMPANY-13660964

PATIENT
  Age: 47 Year
  Sex: Female
  Weight: 102 kg

DRUGS (5)
  1. DEFINITY [Suspect]
     Indication: CARDIAC FAILURE CONGESTIVE
  2. COREG [Concomitant]
  3. ASPIRIN [Concomitant]
  4. ADVAIR DISKUS 100/50 [Concomitant]
  5. ALBUTEROL [Concomitant]

REACTIONS (2)
  - BACK PAIN [None]
  - HEADACHE [None]
